FAERS Safety Report 7694454-5 (Version None)
Quarter: 2011Q3

REPORT INFORMATION
  Report Type: 
  Country: None (occurrence: None)
  Receive Date: 20110819
  Receipt Date: 20110805
  Transmission Date: 20111222
  Serious: Yes (Life-Threatening, Hospitalization)
  Sender: FDA-Public Use
  Company Number: PHBS1994JP00028

PATIENT
  Age: 38 Year
  Sex: Female

DRUGS (1)
  1. METHYLERGONOVINE MALEATE [Suspect]
     Dosage: 0.75 MG, UNK
     Route: 048

REACTIONS (9)
  - ELECTROCARDIOGRAM Q WAVE ABNORMAL [None]
  - ELECTROCARDIOGRAM ST SEGMENT ELEVATION [None]
  - ELECTROCARDIOGRAM T WAVE INVERSION [None]
  - BLOOD CREATINE PHOSPHOKINASE INCREASED [None]
  - CORONARY ARTERY OCCLUSION [None]
  - ARTERIOSPASM CORONARY [None]
  - CHEST PAIN [None]
  - CORONARY ARTERY THROMBOSIS [None]
  - MYOCARDIAL INFARCTION [None]
